FAERS Safety Report 17799740 (Version 6)
Quarter: 2021Q1

REPORT INFORMATION
  Report Type: Spontaneous
  Country: US (occurrence: US)
  Receive Date: 20200518
  Receipt Date: 20210216
  Transmission Date: 20210419
  Serious: Yes (Other)
  Sender: FDA-Public Use
  Company Number: US-PFIZER INC-2020194580

PATIENT
  Age: 74 Year
  Sex: Female
  Weight: 49.9 kg

DRUGS (2)
  1. GENOTROPIN [Suspect]
     Active Substance: SOMATROPIN
     Indication: GROWTH HORMONE DEFICIENCY
     Dosage: 3.6 MG, DAILY
  2. GENOTROPIN [Suspect]
     Active Substance: SOMATROPIN
     Dosage: 3.6 MG, 1X/DAY
     Dates: start: 202003

REACTIONS (7)
  - Hip fracture [Recovering/Resolving]
  - Product dose omission in error [Unknown]
  - Asthenia [Unknown]
  - Fatigue [Unknown]
  - Poor quality product administered [Unknown]
  - Product storage error [Unknown]
  - Loss of personal independence in daily activities [Unknown]

NARRATIVE: CASE EVENT DATE: 20200314
